FAERS Safety Report 7967763-X (Version None)
Quarter: 2011Q4

REPORT INFORMATION
  Report Type: 
  Country: None (occurrence: None)
  Receive Date: 20111209
  Receipt Date: 20111129
  Transmission Date: 20120403
  Serious: Yes (Hospitalization, Other)
  Sender: FDA-Public Use
  Company Number: US-BAYER-201035079NA

PATIENT
  Age: 17 Year
  Sex: Female
  Weight: 145.13 kg

DRUGS (6)
  1. PRILOSEC [Concomitant]
     Dosage: 20 MG, QD
     Route: 048
     Dates: end: 20080505
  2. YASMIN [Suspect]
     Indication: PRODUCT USED FOR UNKNOWN INDICATION
     Dosage: UNK
     Route: 048
     Dates: start: 20070101, end: 20080101
  3. FLONASE [Concomitant]
     Dosage: UNK UNK, QD
     Route: 045
     Dates: end: 20080505
  4. NAPROSYN [Concomitant]
     Dosage: 500 MG, BID
     Route: 048
     Dates: end: 20080401
  5. VICODIN [Concomitant]
     Dosage: UNK UNK, Q4HR
     Route: 048
     Dates: end: 20080505
  6. TRIAMCINOLONE ACETATE [Concomitant]
     Dosage: 0.1 %, BID
     Route: 061

REACTIONS (10)
  - ABDOMINAL DISTENSION [None]
  - DIARRHOEA [None]
  - CHOLECYSTECTOMY [None]
  - SCAR [None]
  - FLATULENCE [None]
  - CONSTIPATION [None]
  - CHOLECYSTITIS CHRONIC [None]
  - DEPRESSION [None]
  - ANXIETY [None]
  - DYSPEPSIA [None]
